FAERS Safety Report 20280573 (Version 1)
Quarter: 2022Q1

REPORT INFORMATION
  Report Type: Spontaneous
  Country: US (occurrence: None)
  Receive Date: 20220101
  Receipt Date: 20220101
  Transmission Date: 20220424
  Serious: Yes (Hospitalization, Other)
  Sender: FDA-Public Use
  Company Number: None

PATIENT
  Age: 84 Year
  Sex: Male

DRUGS (5)
  1. DILTIAZEM HCL CD EXTENDED-RELEASE [Suspect]
     Active Substance: DILTIAZEM HYDROCHLORIDE
     Indication: Hypertension
     Dosage: FREQUENCY : DAILY;?
     Route: 048
     Dates: start: 20211201, end: 20211217
  2. DILTIAZEM HCL CD EXTENDED-RELEASE [Suspect]
     Active Substance: DILTIAZEM HYDROCHLORIDE
     Indication: Atrial fibrillation
  3. Ramipril Cap 2.5mg [Concomitant]
  4. Irbesartan Tab 300 mg [Concomitant]
  5. Isosorbide Mononitrate SR 24Hr 120 mg [Concomitant]

REACTIONS (2)
  - Heart rate decreased [None]
  - Fall [None]

NARRATIVE: CASE EVENT DATE: 20211221
